FAERS Safety Report 24539294 (Version 1)
Quarter: 2024Q4

REPORT INFORMATION
  Report Type: Spontaneous
  Country: SO (occurrence: SO)
  Receive Date: 20241023
  Receipt Date: 20241023
  Transmission Date: 20250115
  Serious: Yes (Hospitalization)
  Sender: MACLEODS
  Company Number: SO-MACLEODS PHARMA-MAC2024049938

PATIENT

DRUGS (1)
  1. SILDENAFIL [Suspect]
     Active Substance: SILDENAFIL
     Indication: Erectile dysfunction
     Route: 048

REACTIONS (2)
  - Phlebitis superficial [Recovering/Resolving]
  - Superficial vein thrombosis [Recovering/Resolving]
